FAERS Safety Report 18333184 (Version 2)
Quarter: 2020Q4

REPORT INFORMATION
  Report Type: Spontaneous
  Country: IT (occurrence: IT)
  Receive Date: 20201001
  Receipt Date: 20201119
  Transmission Date: 20210113
  Serious: Yes (Other)
  Sender: FDA-Public Use
  Company Number: IT-SUN PHARMACEUTICAL INDUSTRIES LTD-2020RR-262889

PATIENT
  Age: 76 Year
  Sex: Female

DRUGS (1)
  1. ATORVASTATIN, TEVA [Suspect]
     Active Substance: ATORVASTATIN
     Indication: ANGIODYSPLASIA
     Dosage: 80 MILLIGRAM, DAILY
     Route: 065

REACTIONS (2)
  - Myalgia [Unknown]
  - Off label use [Unknown]
